FAERS Safety Report 24816810 (Version 2)
Quarter: 2025Q1

REPORT INFORMATION
  Report Type: Spontaneous
  Country: US (occurrence: US)
  Receive Date: 20250107
  Receipt Date: 20250317
  Transmission Date: 20250409
  Serious: No
  Sender: BRISTOL-MYERS SQUIBB COMPANY
  Company Number: US-BRISTOL-MYERS SQUIBB COMPANY-2025-001548

PATIENT
  Age: 59 Year
  Sex: Female
  Weight: 79.38 kg

DRUGS (2)
  1. REVLIMID [Suspect]
     Active Substance: LENALIDOMIDE
     Indication: Plasma cell myeloma
     Dosage: ONCE A DAY FOR 21 DAYS AND OFF FOR 7 DAYS
     Route: 048
     Dates: start: 2023
  2. REVLIMID [Suspect]
     Active Substance: LENALIDOMIDE
     Indication: Plasmacytoma

REACTIONS (5)
  - Abdominal pain [Unknown]
  - Pain [Unknown]
  - Discomfort [Unknown]
  - Abdominal pain upper [Unknown]
  - Incontinence [Unknown]
